FAERS Safety Report 9557871 (Version 2)
Quarter: 2013Q4

REPORT INFORMATION
  Report Type: Report from Study
  Country: US (occurrence: US)
  Receive Date: 20130926
  Receipt Date: 20131216
  Transmission Date: 20140711
  Serious: Yes (Hospitalization, Other)
  Sender: FDA-Public Use
  Company Number: US-ROCHE-1278546

PATIENT
  Sex: Female
  Weight: 61.45 kg

DRUGS (12)
  1. HERCEPTIN [Suspect]
     Indication: OESTROGEN RECEPTOR ASSAY POSITIVE
     Route: 065
  2. HERCEPTIN [Suspect]
     Indication: BREAST CANCER
  3. ARIMIDEX [Concomitant]
  4. ZOMETA [Concomitant]
     Dosage: LAST DOSE ON  22/MAY/2012
     Route: 065
  5. FASLODEX [Concomitant]
  6. EXEMESTANE [Concomitant]
  7. LEVAQUIN [Concomitant]
  8. ROCEPHIN [Concomitant]
     Route: 065
  9. CEFTIN [Concomitant]
  10. AUGMENTIN [Concomitant]
  11. SPIRIVA [Concomitant]
  12. ADVAIR [Concomitant]

REACTIONS (8)
  - Respiratory failure [Unknown]
  - Bronchitis [Unknown]
  - Cerebrovascular accident [Unknown]
  - Disease progression [Unknown]
  - Aspiration [Unknown]
  - Gastrooesophageal reflux disease [Recovered/Resolved]
  - Hiatus hernia [Unknown]
  - Fatigue [Unknown]
